FAERS Safety Report 5214042-X (Version None)
Quarter: 2007Q1

REPORT INFORMATION
  Report Type: 
  Country: None (occurrence: None)
  Receive Date: 20070122
  Receipt Date: 20070111
  Transmission Date: 20070707
  Serious: Yes (Other)
  Sender: FDA-Public Use
  Company Number: FR-PFIZER INC-2007003519

PATIENT
  Age: 70 Year
  Sex: Male

DRUGS (2)
  1. AMLOR [Suspect]
  2. VALSARTAN AND HYDROCHLOROTHIAZIDE [Concomitant]

REACTIONS (3)
  - HOT FLUSH [None]
  - TACHYCARDIA [None]
  - VERTIGO [None]
